FAERS Safety Report 7789321-2 (Version None)
Quarter: 2011Q3

REPORT INFORMATION
  Report Type: 
  Country: None (occurrence: None)
  Receive Date: 20110930
  Receipt Date: 20110926
  Transmission Date: 20111222
  Serious: Yes (Other)
  Sender: FDA-Public Use
  Company Number: US-GLAXOSMITHKLINE-A0946015A

PATIENT
  Age: 43 Year
  Sex: Female

DRUGS (7)
  1. ATIVAN [Concomitant]
  2. LAMICTAL [Suspect]
     Indication: BIPOLAR DISORDER
     Dosage: 200MG TWICE PER DAY
     Route: 048
     Dates: start: 20080901
  3. CYMBALTA [Concomitant]
  4. RESTORIL [Concomitant]
  5. IBUPROFEN [Concomitant]
  6. MULTI-VITAMINS [Concomitant]
  7. FLEXERIL [Concomitant]

REACTIONS (3)
  - FALL [None]
  - PAIN [None]
  - FOOT FRACTURE [None]
